FAERS Safety Report 6011407-3 (Version None)
Quarter: 2008Q4

REPORT INFORMATION
  Report Type: 
  Country: None (occurrence: None)
  Receive Date: 20081217
  Receipt Date: 20081217
  Transmission Date: 20090506
  Serious: Yes (Other)
  Sender: FDA-Public Use
  Company Number: None

PATIENT
  Age: 61 Year
  Sex: Female
  Weight: 83.9154 kg

DRUGS (1)
  1. PROPAFENONE HCL [Suspect]
     Indication: ATRIAL FIBRILLATION
     Dosage: 1 TABLET 3 TIMES DAILY
     Dates: start: 20060401, end: 20081215

REACTIONS (5)
  - EPISTAXIS [None]
  - HEART RATE IRREGULAR [None]
  - HYPOTENSION [None]
  - OVERDOSE [None]
  - PRODUCT QUALITY ISSUE [None]
